FAERS Safety Report 9377715 (Version 1)
Quarter: 2013Q3

REPORT INFORMATION
  Report Type: Spontaneous
  Country: US (occurrence: US)
  Receive Date: 20130701
  Receipt Date: 20130701
  Transmission Date: 20140515
  Serious: No
  Sender: FDA-Public Use
  Company Number: US-COVIDIEN/TYCO HEALTHCARE/MALLINCKRODT-T201302052

PATIENT
  Sex: Female

DRUGS (3)
  1. METHYLPHENIDATE HYDROCHLORIDE EXTENDED RELEASE TABLETS [Suspect]
     Indication: ATTENTION DEFICIT/HYPERACTIVITY DISORDER
     Dosage: 54 MG, QD
     Route: 048
     Dates: start: 201304
  2. LEXAPRO [Concomitant]
     Indication: ANXIETY
     Dosage: UNK
  3. METHYLPHENIDATE [Concomitant]
     Dosage: UNK

REACTIONS (2)
  - Disturbance in attention [Unknown]
  - Drug ineffective [Unknown]
